FAERS Safety Report 9015804 (Version 2)
Quarter: 2013Q1

REPORT INFORMATION
  Report Type: Spontaneous
  Country: AT (occurrence: AT)
  Receive Date: 20130116
  Receipt Date: 20130123
  Transmission Date: 20140127
  Serious: Yes (Death, Other)
  Sender: FDA-Public Use
  Company Number: PHHY2013AT003019

PATIENT
  Age: 8 Year
  Sex: Male

DRUGS (9)
  1. CICLOSPORIN [Suspect]
     Indication: LUNG TRANSPLANT
  2. CICLOSPORIN [Suspect]
     Indication: OBLITERATIVE BRONCHIOLITIS
  3. MYCOPHENOLATE MOFETIL [Suspect]
     Indication: LUNG TRANSPLANT
  4. MYCOPHENOLATE MOFETIL [Suspect]
     Indication: OBLITERATIVE BRONCHIOLITIS
  5. PREDNISONE [Suspect]
     Indication: LUNG TRANSPLANT
  6. PREDNISONE [Suspect]
     Indication: OBLITERATIVE BRONCHIOLITIS
  7. TACROLIMUS [Suspect]
  8. ANTITHYMOCYTE IMMUNOGLOBULIN [Concomitant]
  9. MUROMONAB-CD3 [Concomitant]

REACTIONS (9)
  - Cardiac failure [Fatal]
  - Respiratory failure [Fatal]
  - Renal cancer [Unknown]
  - Obliterative bronchiolitis [Unknown]
  - Bronchostenosis [Unknown]
  - Polyomavirus-associated nephropathy [Unknown]
  - Renal failure chronic [Unknown]
  - Lung transplant rejection [Unknown]
  - Renal failure acute [Unknown]
